FAERS Safety Report 7794274-7 (Version None)
Quarter: 2011Q4

REPORT INFORMATION
  Report Type: 
  Country: None (occurrence: None)
  Receive Date: 20111004
  Receipt Date: 20110928
  Transmission Date: 20120403
  Serious: Yes (Hospitalization)
  Sender: FDA-Public Use
  Company Number: BE-AMGEN-BELSP2011050318

PATIENT
  Age: 73 Year
  Sex: Male

DRUGS (2)
  1. TAXOTERE [Concomitant]
     Indication: LUNG NEOPLASM MALIGNANT
  2. NEUPOGEN [Suspect]
     Indication: CHEMOTHERAPY
     Dosage: UNK UNK, QD
     Route: 058
     Dates: start: 20110919, end: 20110921

REACTIONS (1)
  - INTERSTITIAL LUNG DISEASE [None]
